FAERS Safety Report 9158330 (Version 1)
Quarter: 2013Q1

REPORT INFORMATION
  Report Type: Spontaneous
  Country: US (occurrence: US)
  Receive Date: 20130312
  Receipt Date: 20130312
  Transmission Date: 20140127
  Serious: Yes (Other)
  Sender: FDA-Public Use
  Company Number: US-BAXTER-2013BAX008198

PATIENT
  Age: 44 Year
  Sex: Male

DRUGS (1)
  1. DIANEAL PD2 [Suspect]
     Indication: PERITONEAL DIALYSIS
     Route: 033

REACTIONS (5)
  - Hernia [Recovering/Resolving]
  - Musculoskeletal chest pain [Recovered/Resolved]
  - Musculoskeletal pain [Recovered/Resolved]
  - Vomiting [Recovered/Resolved]
  - Diarrhoea [Recovered/Resolved]
